FAERS Safety Report 7502608-3 (Version None)
Quarter: 2011Q2

REPORT INFORMATION
  Report Type: 
  Country: None (occurrence: None)
  Receive Date: 20110525
  Receipt Date: 20110512
  Transmission Date: 20111010
  Serious: Yes (Other)
  Sender: FDA-Public Use
  Company Number: PHHY2011NL40997

PATIENT
  Sex: Male

DRUGS (3)
  1. ZOMETA [Suspect]
     Indication: PROSTATE CANCER
     Dosage: 4 MG/5 ML, 1X PER 28 DAYS
     Route: 042
     Dates: start: 20100722
  2. ZOMETA [Suspect]
     Dosage: 4 MG/5 ML, 1X PER 28 DAYS
     Route: 042
     Dates: start: 20110512
  3. ZOMETA [Suspect]
     Dosage: 4 MG/5 ML, 1X PER 28 DAYS
     Route: 042
     Dates: start: 20110412

REACTIONS (1)
  - FLUID RETENTION [None]
